FAERS Safety Report 18940117 (Version 1)
Quarter: 2021Q1

REPORT INFORMATION
  Report Type: Spontaneous
  Country: US (occurrence: US)
  Receive Date: 20210225
  Receipt Date: 20210225
  Transmission Date: 20210420
  Serious: Yes (Other)
  Sender: FDA-Public Use
  Company Number: None

PATIENT
  Age: 75 Year
  Sex: Female
  Weight: 73.8 kg

DRUGS (1)
  1. BROMSITE [Suspect]
     Active Substance: BROMFENAC SODIUM
     Indication: CATARACT OPERATION
     Dosage: ?          QUANTITY:1 DROP(S);?
     Route: 047
     Dates: start: 20210201, end: 20210224

REACTIONS (2)
  - Photophobia [None]
  - Pain [None]

NARRATIVE: CASE EVENT DATE: 20210224
